FAERS Safety Report 7657431 (Version 4)
Quarter: 2013Q1

REPORT INFORMATION
  Report Type: Spontaneous
  Country: US (occurrence: US)
  Receive Date: 20101105
  Receipt Date: 20130313
  Transmission Date: 20140127
  Serious: Yes (Hospitalization)
  Sender: FDA-Public Use
  Company Number: US-BAYER-201039519NA

PATIENT
  Age: 42 Year
  Sex: Female
  Weight: 95 kg

DRUGS (32)
  1. YASMIN [Suspect]
     Indication: CONTRACEPTION
     Dosage: UNK
     Route: 048
     Dates: start: 200607, end: 20070415
  2. YASMIN [Suspect]
     Indication: MIGRAINE
  3. YASMIN [Suspect]
     Indication: MENOPAUSE
  4. AVELOX [Concomitant]
     Dosage: 400 MG (DAILY DOSE), , ORAL
     Route: 048
     Dates: start: 2005
  5. LEVAQUIN [Concomitant]
     Dates: start: 2005
  6. PROVENTIL [Concomitant]
     Dates: start: 2005
  7. PREDNISONE [Concomitant]
     Indication: ASTHMA
     Dosage: 40 MG (DAILY DOSE), , ORAL
     Route: 048
     Dates: start: 2005
  8. ADVAIR [Concomitant]
     Dosage: TOTAL DAIKY DOSE: 500
     Dates: start: 2005
  9. XOPENEX [Concomitant]
     Dosage: TOTAL DAILY DOSE: 1.25
     Route: 055
     Dates: start: 2005
  10. PULMICORT [Concomitant]
     Dosage: TOTAL DAILY DOSE: 50
     Route: 055
     Dates: start: 2005
  11. TYLENOL [Concomitant]
     Indication: HEADACHE
  12. MOTRIN [Concomitant]
     Indication: HEADACHE
  13. PROZAC [Concomitant]
     Indication: HEADACHE
     Dates: start: 2000
  14. BIAXIN [Concomitant]
  15. OPIUM ALKALOIDS AND DERIVATIVES [Concomitant]
     Dosage: 2 TEA SPOONS EVERY 4-6 HOURS
     Route: 048
  16. CALCIUM CARBONATE [Concomitant]
     Dates: start: 200704
  17. CODEINE W/GUAIFENESIN [Concomitant]
     Dates: start: 200704
  18. IPRATROPIUM [Concomitant]
     Dates: start: 200704
  19. SINGULAIR [Concomitant]
  20. POTASSIUM [Concomitant]
     Dates: start: 200704
  21. ZITHROMAX [Concomitant]
     Dates: start: 200704
  22. ACIDO FOLICO [Concomitant]
  23. VITAMIN B12 [Concomitant]
  24. SYMPATHOMIMETICS [Concomitant]
     Dosage: 2 TEA SPOONS EVERY 4-6 HOURS
     Route: 048
  25. RANITIDINE [Concomitant]
     Dosage: 150 MG, BID
     Route: 048
  26. PROMETHAZINE W/CODEINE [Concomitant]
     Dosage: 1 TO 2 TEASPOONS Q 4 HOURS
     Route: 048
  27. DEPO-MEDROL [Concomitant]
     Dosage: 40
  28. FLUCONAZOLE [Concomitant]
     Dosage: 100 MG, UNK
  29. TRIAMTERENE AND HYDROCHLOROTHIAZIDE [Concomitant]
     Dosage: 37.5/25
  30. DARVOCET N-100 [Concomitant]
  31. AMBIEN [Concomitant]
     Indication: SLEEP DISORDER THERAPY
     Dosage: 10 MG, AT BEDTIME AS NEEDED
  32. TUSSINATE [Concomitant]
     Dosage: EVERYDAY, DOSE UNKNOWN

REACTIONS (5)
  - Pulmonary embolism [Recovered/Resolved]
  - Thrombosis [Recovered/Resolved]
  - Hyperhidrosis [Unknown]
  - Wheezing [Recovered/Resolved]
  - Dyspnoea [Recovered/Resolved]
